FAERS Safety Report 24937253 (Version 2)
Quarter: 2025Q3

REPORT INFORMATION
  Report Type: Spontaneous
  Country: MD (occurrence: MD)
  Receive Date: 20250206
  Receipt Date: 20250807
  Transmission Date: 20251020
  Serious: Yes (Life-Threatening, Hospitalization)
  Sender: SANDOZ
  Company Number: None

PATIENT
  Sex: Female

DRUGS (1)
  1. ACLASTA [Suspect]
     Active Substance: ZOLEDRONIC ACID
     Indication: Osteoarthritis
     Dosage: 5 MG, QD (BY NIGHT)
     Route: 042
     Dates: start: 20241123, end: 20241123

REACTIONS (6)
  - Headache [Recovering/Resolving]
  - Vertigo [Recovering/Resolving]
  - Chills [Recovering/Resolving]
  - Nausea [Recovering/Resolving]
  - Vomiting [Recovering/Resolving]
  - Myalgia [Recovering/Resolving]

NARRATIVE: CASE EVENT DATE: 20241123
